FAERS Safety Report 11491507 (Version 1)
Quarter: 2015Q3

REPORT INFORMATION
  Report Type: Spontaneous
  Country: US (occurrence: US)
  Receive Date: 20150910
  Receipt Date: 20150910
  Transmission Date: 20151125
  Serious: No
  Sender: FDA-Public Use
  Company Number: US-ELI_LILLY_AND_COMPANY-US201509002532

PATIENT
  Sex: Female

DRUGS (4)
  1. HUMULIN N [Suspect]
     Active Substance: INSULIN HUMAN
     Indication: TYPE 2 DIABETES MELLITUS
     Dosage: 17 U, EACH MORNING
     Route: 065
     Dates: start: 201503
  2. LEVEMIR [Concomitant]
     Active Substance: INSULIN DETEMIR
  3. HUMULIN N [Suspect]
     Active Substance: INSULIN HUMAN
     Dosage: 7 U, EACH EVENING
     Route: 065
     Dates: start: 201503
  4. METFORMIN [Concomitant]
     Active Substance: METFORMIN HYDROCHLORIDE

REACTIONS (4)
  - Wound [Unknown]
  - Blood pressure increased [Unknown]
  - Cataract [Unknown]
  - Drug hypersensitivity [Unknown]
